FAERS Safety Report 5489807-X (Version None)
Quarter: 2007Q4

REPORT INFORMATION
  Report Type: 
  Country: None (occurrence: None)
  Receive Date: 20071018
  Receipt Date: 20071010
  Transmission Date: 20080405
  Serious: Yes (Hospitalization)
  Sender: FDA-Public Use
  Company Number: CO-JNJFOC-20071004029

PATIENT
  Age: 47 Year
  Sex: Male

DRUGS (2)
  1. HALDOL [Suspect]
     Indication: BIPOLAR DISORDER
  2. AKINETON [Suspect]
     Indication: BIPOLAR DISORDER

REACTIONS (1)
  - MENTAL DISORDER [None]
